FAERS Safety Report 17958993 (Version 1)
Quarter: 2020Q2

REPORT INFORMATION
  Report Type: Report from Study
  Country: JP (occurrence: JP)
  Receive Date: 20200629
  Receipt Date: 20200629
  Transmission Date: 20200714
  Serious: Yes (Other)
  Sender: FDA-Public Use
  Company Number: JP-PFIZER INC-2020-07994

PATIENT
  Age: 75 Year
  Sex: Male

DRUGS (2)
  1. BINIMETINIB [Suspect]
     Active Substance: BINIMETINIB
     Indication: MALIGNANT MELANOMA
     Dosage: 45 MG
     Route: 048
     Dates: start: 20200521, end: 20200522
  2. ENCORAFENIB [Suspect]
     Active Substance: ENCORAFENIB
     Indication: MALIGNANT MELANOMA
     Dosage: 450 MG
     Route: 048
     Dates: start: 20200521, end: 20200522

REACTIONS (2)
  - Retinal oedema [Unknown]
  - Uveitis [Unknown]

NARRATIVE: CASE EVENT DATE: 20200522
